FAERS Safety Report 9632098 (Version 1)
Quarter: 2013Q4

REPORT INFORMATION
  Report Type: Spontaneous
  Country: AU (occurrence: None)
  Receive Date: 20131016
  Receipt Date: 20131016
  Transmission Date: 20140711
  Serious: No
  Sender: FDA-Public Use
  Company Number: AU-2013-3329

PATIENT
  Sex: Female

DRUGS (6)
  1. VINORELBINE [Suspect]
     Indication: HER-2 POSITIVE BREAST CANCER
     Dosage: ON DAYS 1 AND 8 OF THE FIRST CYCLE
     Route: 048
  2. VINORELBINE [Suspect]
     Indication: BREAST CANCER METASTATIC
     Dosage: ON DAYS 1 AND 8 OF THE FIRST CYCLE
     Route: 048
  3. CAPECITABINE [Suspect]
     Indication: HER-2 POSITIVE BREAST CANCER
     Dosage: DAYS 1 TO 14, EVERY 21 DAYS
     Route: 048
  4. CAPECITABINE [Suspect]
     Indication: BREAST CANCER METASTATIC
     Dosage: DAYS 1 TO 14, EVERY 21 DAYS
     Route: 048
  5. TRASTUZUMAB [Suspect]
     Indication: HER-2 POSITIVE BREAST CANCER
     Dosage: ON DAY 1 (LOADING DOSE) , THEN MG/KG WEEKLY, EVERY 21 DAYS
     Route: 042
  6. TRASTUZUMAB [Suspect]
     Indication: BREAST CANCER METASTATIC
     Dosage: ON DAY 1 (LOADING DOSE) , THEN MG/KG WEEKLY, EVERY 21 DAYS
     Route: 042

REACTIONS (12)
  - Thrombosis [None]
  - Anaemia [None]
  - Leukopenia [None]
  - Neutropenia [None]
  - Nausea [None]
  - Vomiting [None]
  - Alopecia [None]
  - Diarrhoea [None]
  - Constipation [None]
  - Stomatitis [None]
  - Palmar-plantar erythrodysaesthesia syndrome [None]
  - Fatigue [None]
